FAERS Safety Report 25932653 (Version 1)
Quarter: 2025Q4

REPORT INFORMATION
  Report Type: Report from Study
  Country: CA (occurrence: CA)
  Receive Date: 20251017
  Receipt Date: 20251017
  Transmission Date: 20260118
  Serious: Yes (Hospitalization)
  Sender: ACCORD
  Company Number: None

PATIENT
  Age: 28 Year
  Sex: Female

DRUGS (12)
  1. LACOSAMIDE [Suspect]
     Active Substance: LACOSAMIDE
     Indication: Product used for unknown indication
  2. CLOBAZAM [Suspect]
     Active Substance: CLOBAZAM
     Indication: Product used for unknown indication
     Dosage: 1 EVERY 1 DAY
  3. LAMOTRIGINE [Suspect]
     Active Substance: LAMOTRIGINE
     Indication: Product used for unknown indication
     Dosage: CYCLICAL
  4. PHENYTOIN [Suspect]
     Active Substance: PHENYTOIN
     Indication: Product used for unknown indication
  5. CENOBAMATE [Suspect]
     Active Substance: CENOBAMATE
     Indication: Partial seizures
     Dosage: 1 EVERY 1 DAY
     Route: 048
  6. IRON [Concomitant]
     Active Substance: IRON
  7. LORAZEPAM [Concomitant]
     Active Substance: LORAZEPAM
  8. MAGNESIUM [Concomitant]
     Active Substance: MAGNESIUM
  9. CENOBAMATE [Suspect]
     Active Substance: CENOBAMATE
     Indication: Partial seizures
     Dosage: 1 EVERY 1 DAY
     Route: 048
  10. CENOBAMATE [Suspect]
     Active Substance: CENOBAMATE
     Indication: Partial seizures
     Dosage: 1 EVERY 1 DAY
     Route: 048
  11. CENOBAMATE [Suspect]
     Active Substance: CENOBAMATE
     Indication: Partial seizures
     Dosage: 1 EVERY 1 DAY
     Route: 048
  12. CENOBAMATE [Suspect]
     Active Substance: CENOBAMATE
     Indication: Partial seizures
     Dosage: 1 EVERY 1 DAY
     Route: 048

REACTIONS (20)
  - Intentional dose omission [Unknown]
  - Petit mal epilepsy [Unknown]
  - Seizure [Unknown]
  - Eating disorder [Unknown]
  - Product communication issue [Unknown]
  - Status epilepticus [Unknown]
  - Fatigue [Unknown]
  - Hypokinesia [Unknown]
  - Personality change [Unknown]
  - Planning to become pregnant [Unknown]
  - Somnolence [Unknown]
  - Therapy interrupted [Unknown]
  - Asthenia [Unknown]
  - Generalised tonic-clonic seizure [Unknown]
  - Product distribution issue [Unknown]
  - Urinary retention [Unknown]
  - Coma scale abnormal [Unknown]
  - Drug dose titration not performed [Unknown]
  - Hypersomnia [Unknown]
  - Partial seizures [Unknown]
